FAERS Safety Report 23772196 (Version 1)
Quarter: 2024Q2

REPORT INFORMATION
  Report Type: Report from Study
  Country: GT (occurrence: GT)
  Receive Date: 20240423
  Receipt Date: 20240423
  Transmission Date: 20240716
  Serious: Yes (Other)
  Sender: FDA-Public Use
  Company Number: GT-002147023-NVSC2024GT010661

PATIENT
  Age: 82 Year
  Sex: Female

DRUGS (1)
  1. KISQALI [Suspect]
     Active Substance: RIBOCICLIB
     Indication: Breast cancer
     Dosage: 600 MG, QD
     Route: 048
     Dates: start: 20231121

REACTIONS (4)
  - Arrhythmia [Unknown]
  - Chest discomfort [Unknown]
  - Heart rate increased [Unknown]
  - Pain in jaw [Unknown]

NARRATIVE: CASE EVENT DATE: 20231227
